FAERS Safety Report 5574072-5 (Version None)
Quarter: 2007Q4

REPORT INFORMATION
  Report Type: 
  Country: None (occurrence: None)
  Receive Date: 20071221
  Receipt Date: 20071205
  Transmission Date: 20080405
  Serious: Yes (Hospitalization)
  Sender: FDA-Public Use
  Company Number: 2007BM000194

PATIENT
  Age: 46 Year
  Sex: Male

DRUGS (2)
  1. PREDNISONE [Suspect]
     Indication: GLOMERULONEPHRITIS
  2. ORAPRED [Suspect]

REACTIONS (9)
  - ACUTE RESPIRATORY FAILURE [None]
  - BLOOD POTASSIUM DECREASED [None]
  - BLOOD SODIUM DECREASED [None]
  - HEART RATE INCREASED [None]
  - HEPATITIS [None]
  - PNEUMONIA CYTOMEGALOVIRAL [None]
  - PULMONARY TUBERCULOSIS [None]
  - RESPIRATORY RATE INCREASED [None]
  - WHITE BLOOD CELL COUNT INCREASED [None]
